FAERS Safety Report 15607552 (Version 33)
Quarter: 2021Q4

REPORT INFORMATION
  Report Type: Spontaneous
  Country: US (occurrence: US)
  Receive Date: 20181112
  Receipt Date: 20211119
  Transmission Date: 20220304
  Serious: Yes (Hospitalization, Other)
  Sender: FDA-Public Use
  Company Number: US-PFIZER INC-2018427111

PATIENT
  Age: 67 Year
  Sex: Male
  Weight: 91 kg

DRUGS (15)
  1. LYRICA [Suspect]
     Active Substance: PREGABALIN
     Indication: Burning sensation
     Dosage: 200 MG, FOUR TIMES DAILY
     Route: 048
     Dates: start: 2009
  2. LYRICA [Suspect]
     Active Substance: PREGABALIN
     Indication: Hypoaesthesia
     Dosage: 150 MG
     Route: 048
  3. LYRICA [Suspect]
     Active Substance: PREGABALIN
     Indication: Pain
     Dosage: 150 MG, THREE TIMES A DAY
     Route: 048
  4. LYRICA [Suspect]
     Active Substance: PREGABALIN
     Indication: Peripheral nerve lesion
     Dosage: 200 MG, THREE TIMES A DAY
     Route: 048
  5. LYRICA [Suspect]
     Active Substance: PREGABALIN
     Indication: Restless legs syndrome
     Dosage: 200 MG, 3-4 TIMES DAILY
     Route: 048
  6. LYRICA [Suspect]
     Active Substance: PREGABALIN
     Indication: Pain in extremity
     Dosage: 300 MG, THREE TIMES DAILLY
     Route: 048
  7. LYRICA [Suspect]
     Active Substance: PREGABALIN
     Indication: Arthralgia
     Dosage: 300 MG, TWICE A DAY (IN THE MORNING AND ONE AT NIGHT BEFORE BED)
     Route: 048
  8. LYRICA [Suspect]
     Active Substance: PREGABALIN
     Indication: Neuropathy peripheral
     Dosage: 200 MG, THREE TIMES A DAY
     Route: 048
     Dates: start: 20160108
  9. LYRICA [Suspect]
     Active Substance: PREGABALIN
     Indication: Neuralgia
     Dosage: 200 MG, 4X/DAY (DISPENSE 360)
     Route: 048
  10. LOSARTAN AND HYDROCHLOROTHIAZIDE [Concomitant]
     Active Substance: HYDROCHLOROTHIAZIDE\LOSARTAN POTASSIUM
     Dosage: 100 MG
  11. LOSARTAN POTASSIUM [Concomitant]
     Active Substance: LOSARTAN POTASSIUM
     Indication: Hypertension
     Dosage: 150 MG, DAILY (100MG IN AM AND 50MG IN PM DAILY)
     Route: 048
  12. OXYCODONE HYDROCHLORIDE [Concomitant]
     Active Substance: OXYCODONE HYDROCHLORIDE
     Indication: Pain
     Dosage: 30 MG, UNK
  13. OXYCODONE HYDROCHLORIDE [Concomitant]
     Active Substance: OXYCODONE HYDROCHLORIDE
     Dosage: UNK, DAILY
     Route: 048
  14. DIAZEPAM [Concomitant]
     Active Substance: DIAZEPAM
     Dosage: 10 MG, 3X/DAY
     Route: 048
  15. GABAPENTIN [Concomitant]
     Active Substance: GABAPENTIN
     Dosage: UNK
     Dates: start: 2012

REACTIONS (8)
  - Therapeutic product effect incomplete [Unknown]
  - Neuropathy peripheral [Unknown]
  - Intentional product use issue [Unknown]
  - Expired product administered [Unknown]
  - Prescribed overdose [Unknown]
  - Gait disturbance [Unknown]
  - Muscle atrophy [Unknown]
  - Insomnia [Unknown]

NARRATIVE: CASE EVENT DATE: 20190101
